FAERS Safety Report 17074862 (Version 1)
Quarter: 2019Q4

REPORT INFORMATION
  Report Type: Spontaneous
  Country: US (occurrence: US)
  Receive Date: 20191126
  Receipt Date: 20191126
  Transmission Date: 20200122
  Serious: No
  Sender: FDA-Public Use
  Company Number: US-AUROBINDO-AUR-APL-2019-051891

PATIENT
  Age: 63 Year
  Sex: Female

DRUGS (2)
  1. BACTRIM [Concomitant]
     Active Substance: SULFAMETHOXAZOLE\TRIMETHOPRIM
     Indication: ANTIBIOTIC THERAPY
     Dosage: UNK
     Route: 065
  2. LOSARTAN POTASSIUM / HYDROCHLOROTHIAZIDE 50MG +12.5 MG [Suspect]
     Active Substance: HYDROCHLOROTHIAZIDE\LOSARTAN POTASSIUM
     Indication: HYPERTENSION
     Dosage: 50/12.5 MG ONCE A DAY, 5 DOSES
     Route: 065

REACTIONS (2)
  - Heart rate irregular [Recovering/Resolving]
  - Product substitution issue [Unknown]
